FAERS Safety Report 4402789-4 (Version None)
Quarter: 2004Q3

REPORT INFORMATION
  Report Type: 
  Country: None (occurrence: None)
  Receive Date: 20040721
  Receipt Date: 20031020
  Transmission Date: 20050211
  Serious: No
  Sender: FDA-Public Use
  Company Number: US-BRISTOL-MYERS SQUIBB COMPANY-12424461

PATIENT
  Age: 35 Year
  Sex: Male

DRUGS (4)
  1. ZERIT [Suspect]
     Dates: start: 20021101
  2. SUSTIVA [Suspect]
     Dates: start: 20020601, end: 20021101
  3. COMBIVIR [Suspect]
     Dates: start: 20020601, end: 20021101
  4. ZIDOVUDINE [Suspect]
     Dates: start: 20021101

REACTIONS (3)
  - ANAEMIA [None]
  - LIPODYSTROPHY ACQUIRED [None]
  - WEIGHT DECREASED [None]
